FAERS Safety Report 10175741 (Version 2)
Quarter: 2014Q2

REPORT INFORMATION
  Report Type: Report from Study
  Country: US (occurrence: US)
  Receive Date: 20140516
  Receipt Date: 20140516
  Transmission Date: 20141212
  Serious: Yes (Hospitalization)
  Sender: FDA-Public Use
  Company Number: US-BRISTOL-MYERS SQUIBB COMPANY-20544425

PATIENT
  Age: 56 Year
  Sex: Female
  Weight: 52.61 kg

DRUGS (15)
  1. IPILIMUMAB [Suspect]
     Indication: PANCREATIC CARCINOMA
     Dosage: Q3 CYCLES
     Dates: start: 20130829, end: 20140130
  2. GEMCITABINE [Suspect]
     Indication: PANCREATIC CARCINOMA
     Dates: start: 20130829, end: 20140410
  3. LIDODERM [Concomitant]
  4. IBUPROFEN [Concomitant]
  5. SERTRALINE [Concomitant]
  6. ATIVAN [Concomitant]
  7. COMPAZINE [Concomitant]
  8. SENOKOT [Concomitant]
  9. CLONAZEPAM [Concomitant]
  10. FENTANYL [Concomitant]
  11. GABAPENTIN [Concomitant]
  12. OMEPRAZOLE [Concomitant]
  13. POLYETHYLENE [Concomitant]
  14. POTASSIUM [Concomitant]
  15. TRAZODONE HCL [Concomitant]

REACTIONS (5)
  - Abdominal pain [Unknown]
  - Vomiting [Unknown]
  - Hypokalaemia [Unknown]
  - Ascites [Unknown]
  - Diarrhoea [Recovered/Resolved]
